FAERS Safety Report 14700488 (Version 5)
Quarter: 2019Q2

REPORT INFORMATION
  Report Type: Spontaneous
  Country: US (occurrence: US)
  Receive Date: 20180330
  Receipt Date: 20190412
  Transmission Date: 20190711
  Serious: Yes (Other)
  Sender: FDA-Public Use
  Company Number: US-ASTRAZENECA-2018SE36834

PATIENT
  Age: 67 Year
  Sex: Female

DRUGS (47)
  1. NEXIUM [Suspect]
     Active Substance: ESOMEPRAZOLE MAGNESIUM
     Indication: GASTROOESOPHAGEAL REFLUX DISEASE
     Route: 048
     Dates: start: 2002
  2. ASPIRIN. [Concomitant]
     Active Substance: ASPIRIN
  3. COMBIVENT [Concomitant]
     Active Substance: ALBUTEROL SULFATE\IPRATROPIUM BROMIDE
  4. MONTELUKAST [Concomitant]
     Active Substance: MONTELUKAST SODIUM
  5. NEXIUM [Suspect]
     Active Substance: ESOMEPRAZOLE MAGNESIUM
     Indication: GASTROOESOPHAGEAL REFLUX DISEASE
     Route: 048
     Dates: start: 20100819
  6. CLINDAMYCIN. [Concomitant]
     Active Substance: CLINDAMYCIN
  7. TOPIRAMATE. [Concomitant]
     Active Substance: TOPIRAMATE
  8. LANSOPRAZOLE. [Suspect]
     Active Substance: LANSOPRAZOLE
     Indication: GASTROOESOPHAGEAL REFLUX DISEASE
     Route: 065
     Dates: start: 2012
  9. SPIRIVA [Concomitant]
     Active Substance: TIOTROPIUM BROMIDE MONOHYDRATE
  10. AMITRIPTYLINE [Concomitant]
     Active Substance: AMITRIPTYLINE
  11. ALENDRONATE SODIUM. [Concomitant]
     Active Substance: ALENDRONATE SODIUM
  12. ONDANSETRON [Concomitant]
     Active Substance: ONDANSETRON
  13. NIFEDIPINE. [Concomitant]
     Active Substance: NIFEDIPINE
  14. LEVOXYL [Concomitant]
     Active Substance: LEVOTHYROXINE SODIUM
  15. PROAIR HFA [Concomitant]
     Active Substance: ALBUTEROL SULFATE
  16. METOPROLOL TARTRATE. [Concomitant]
     Active Substance: METOPROLOL TARTRATE
  17. NEXIUM [Suspect]
     Active Substance: ESOMEPRAZOLE MAGNESIUM
     Indication: GASTROOESOPHAGEAL REFLUX DISEASE
     Route: 048
     Dates: start: 1986, end: 2011
  18. LASIX [Concomitant]
     Active Substance: FUROSEMIDE
  19. CELEBREX [Concomitant]
     Active Substance: CELECOXIB
  20. PAROXETINE. [Concomitant]
     Active Substance: PAROXETINE
  21. GABAPENTIN. [Concomitant]
     Active Substance: GABAPENTIN
  22. MELOXICAM. [Concomitant]
     Active Substance: MELOXICAM
  23. BACLOFEN. [Concomitant]
     Active Substance: BACLOFEN
  24. PREDNISONE. [Concomitant]
     Active Substance: PREDNISONE
  25. LANSOPRAZOLE. [Suspect]
     Active Substance: LANSOPRAZOLE
     Indication: GASTROOESOPHAGEAL REFLUX DISEASE
     Route: 065
     Dates: start: 20130422
  26. LINACLOTIDE [Concomitant]
     Active Substance: LINACLOTIDE
  27. ADALAT CC [Concomitant]
     Active Substance: NIFEDIPINE
  28. COUMADIN [Concomitant]
     Active Substance: WARFARIN SODIUM
  29. ZETIA [Concomitant]
     Active Substance: EZETIMIBE
  30. TRICOR [Concomitant]
     Active Substance: FENOFIBRATE
  31. ACETAMINOPHEN. [Concomitant]
     Active Substance: ACETAMINOPHEN
  32. HYDROCODONE BITARTRATE AND ACETAMINOPHEN [Concomitant]
     Active Substance: ACETAMINOPHEN\HYDROCODONE BITARTRATE
  33. TRAMADOL. [Concomitant]
     Active Substance: TRAMADOL
  34. LISINOPRIL. [Concomitant]
     Active Substance: LISINOPRIL
  35. AMLODIPINE BESYLATE. [Concomitant]
     Active Substance: AMLODIPINE BESYLATE
  36. LABETALOL [Concomitant]
     Active Substance: LABETALOL\LABETALOL HYDROCHLORIDE
  37. NEXIUM [Suspect]
     Active Substance: ESOMEPRAZOLE MAGNESIUM
     Indication: GASTROOESOPHAGEAL REFLUX DISEASE
     Route: 048
     Dates: start: 20090416
  38. NORMODYNE [Concomitant]
     Active Substance: LABETALOL HYDROCHLORIDE
  39. LIPITOR [Concomitant]
     Active Substance: ATORVASTATIN CALCIUM
  40. OXCARBAZEPINE. [Concomitant]
     Active Substance: OXCARBAZEPINE
  41. BENADRYL [Concomitant]
     Active Substance: DIPHENHYDRAMINE HYDROCHLORIDE
  42. MEPERIDINE [Concomitant]
     Active Substance: MEPERIDINE
  43. ACTONEL [Concomitant]
     Active Substance: RISEDRONATE SODIUM
  44. LEVOFLOXACIN. [Concomitant]
     Active Substance: LEVOFLOXACIN
  45. OMEPRAZOLE. [Suspect]
     Active Substance: OMEPRAZOLE
     Indication: GASTROOESOPHAGEAL REFLUX DISEASE
     Route: 065
     Dates: start: 2013
  46. VITAMIN D2 [Concomitant]
     Active Substance: ERGOCALCIFEROL
  47. AVELOX [Concomitant]
     Active Substance: MOXIFLOXACIN HYDROCHLORIDE

REACTIONS (6)
  - Chronic kidney disease [Unknown]
  - Renal disorder [Unknown]
  - Acute kidney injury [Unknown]
  - Nephrogenic anaemia [Unknown]
  - End stage renal disease [Not Recovered/Not Resolved]
  - Renal failure [Unknown]

NARRATIVE: CASE EVENT DATE: 2015
